FAERS Safety Report 25218817 (Version 2)
Quarter: 2025Q2

REPORT INFORMATION
  Report Type: Spontaneous
  Country: US (occurrence: US)
  Receive Date: 20250421
  Receipt Date: 20250501
  Transmission Date: 20250716
  Serious: Yes (Life-Threatening, Hospitalization)
  Sender: TEVA
  Company Number: US-TEVA-VS-3323626

PATIENT
  Age: 64 Year
  Sex: Male

DRUGS (3)
  1. LINEZOLID [Suspect]
     Active Substance: LINEZOLID
     Indication: Toxic shock syndrome streptococcal
     Route: 065
  2. NOREPINEPHRINE [Concomitant]
     Active Substance: NOREPINEPHRINE
     Indication: Drug therapy
     Route: 065
  3. CEFTRIAXONE [Suspect]
     Active Substance: CEFTRIAXONE
     Indication: Toxic shock syndrome streptococcal
     Route: 065

REACTIONS (1)
  - Drug ineffective [Unknown]
